FAERS Safety Report 10665460 (Version 1)
Quarter: 2014Q4

REPORT INFORMATION
  Report Type: Spontaneous
  Country: DE (occurrence: DE)
  Receive Date: 20141219
  Receipt Date: 20141219
  Transmission Date: 20150529
  Serious: Yes (Congenital Anomaly, Other)
  Sender: FDA-Public Use
  Company Number: DE-TEVA-527971GER

PATIENT
  Age: 1 Day
  Sex: Female

DRUGS (1)
  1. VALPROAT [Suspect]
     Active Substance: VALPROATE SODIUM
     Indication: EPILEPSY
     Dosage: 750 MILLIGRAM DAILY;
     Route: 064

REACTIONS (7)
  - Developmental delay [Unknown]
  - Hypoglycaemia neonatal [Recovered/Resolved]
  - Foetal exposure during pregnancy [Unknown]
  - Premature closure of cranial sutures [Not Recovered/Not Resolved]
  - Microcephaly [Not Recovered/Not Resolved]
  - Atrial septal defect [Not Recovered/Not Resolved]
  - Small for dates baby [Unknown]

NARRATIVE: CASE EVENT DATE: 20120603
